FAERS Safety Report 25954885 (Version 2)
Quarter: 2025Q4

REPORT INFORMATION
  Report Type: Spontaneous
  Country: EU (occurrence: EU)
  Receive Date: 20251024
  Receipt Date: 20251212
  Transmission Date: 20260118
  Serious: No
  Sender: LEO PHARM
  Company Number: EU-LEO Pharma-383608

PATIENT
  Age: 53 Year
  Sex: Female

DRUGS (2)
  1. ANZUPGO [Suspect]
     Active Substance: DELGOCITINIB
     Indication: Hand dermatitis
     Dosage: 2 APPLICATIONS / DAY (MORNING AND EVENING)
     Route: 003
     Dates: start: 20250721, end: 202510
  2. HUMIRA [Concomitant]
     Active Substance: ADALIMUMAB
     Indication: Ankylosing spondylitis

REACTIONS (4)
  - Nail dystrophy [Unknown]
  - Cellulitis [Recovered/Resolved with Sequelae]
  - Paronychia [Recovered/Resolved with Sequelae]
  - Skin reaction [Unknown]

NARRATIVE: CASE EVENT DATE: 20251001
